FAERS Safety Report 21233133 (Version 2)
Quarter: 2022Q3

REPORT INFORMATION
  Report Type: Spontaneous
  Country: US (occurrence: US)
  Receive Date: 20220819
  Receipt Date: 20220824
  Transmission Date: 20221027
  Serious: Yes (Hospitalization)
  Sender: FDA-Public Use
  Company Number: US-UROGEN PHARMA LTD.-2022-UGN-000088

PATIENT

DRUGS (4)
  1. JELMYTO [Suspect]
     Active Substance: MITOMYCIN
     Indication: Transitional cell cancer of the renal pelvis and ureter
     Dosage: 1 MG, (INSTILLATION)
     Dates: start: 20220721, end: 20220721
  2. JELMYTO [Suspect]
     Active Substance: MITOMYCIN
     Dosage: 1 MG, (INSTILLATION)
     Dates: start: 20220728, end: 20220728
  3. JELMYTO [Suspect]
     Active Substance: MITOMYCIN
     Dosage: 1 MG, (INSTILLATION)
     Dates: start: 20220804, end: 20220804
  4. JELMYTO [Suspect]
     Active Substance: MITOMYCIN
     Dosage: 1 MG, (INSTILLATION)
     Dates: start: 20220818, end: 20220818

REACTIONS (1)
  - Iron deficiency anaemia [Recovering/Resolving]

NARRATIVE: CASE EVENT DATE: 20220804
